FAERS Safety Report 8426998-2 (Version None)
Quarter: 2012Q2

REPORT INFORMATION
  Report Type: 
  Country: None (occurrence: None)
  Receive Date: 20120611
  Receipt Date: 20120604
  Transmission Date: 20120825
  Serious: Yes (Other)
  Sender: FDA-Public Use
  Company Number: US-ROCHE-1074867

PATIENT
  Sex: Female

DRUGS (2)
  1. KLONOPIN [Suspect]
     Indication: SLEEP DISORDER
  2. MINOCIN [Concomitant]

REACTIONS (2)
  - ANTINUCLEAR ANTIBODY POSITIVE [None]
  - HAIR TEXTURE ABNORMAL [None]
